FAERS Safety Report 13842423 (Version 1)
Quarter: 2017Q3

REPORT INFORMATION
  Report Type: Spontaneous
  Country: US (occurrence: US)
  Receive Date: 20170807
  Receipt Date: 20170807
  Transmission Date: 20171127
  Serious: Yes (Disabling)
  Sender: FDA-Public Use
  Company Number: None

PATIENT
  Age: 52 Year
  Sex: Female
  Weight: 48.6 kg

DRUGS (9)
  1. DEPO-MEDROL [Suspect]
     Active Substance: METHYLPREDNISOLONE ACETATE
     Indication: NERVOUS SYSTEM DISORDER
     Dosage: ?          QUANTITY:20 MG/ML;OTHER FREQUENCY:PER SHOT;OTHER ROUTE:IN THE GLUTS?
     Dates: start: 20100630, end: 20100723
  2. LEXAPRO [Concomitant]
     Active Substance: ESCITALOPRAM OXALATE
  3. FISH OIL [Concomitant]
     Active Substance: FISH OIL
  4. VITAMIN D3 [Concomitant]
     Active Substance: CHOLECALCIFEROL
  5. DEPO-MEDROL [Suspect]
     Active Substance: METHYLPREDNISOLONE ACETATE
     Indication: PARAESTHESIA
     Dosage: ?          QUANTITY:20 MG/ML;OTHER FREQUENCY:PER SHOT;OTHER ROUTE:IN THE GLUTS?
     Dates: start: 20100630, end: 20100723
  6. CALCIUM [Concomitant]
     Active Substance: CALCIUM
  7. LYRICA [Concomitant]
     Active Substance: PREGABALIN
  8. ONE A DAY  MULTI-VITAMIN [Concomitant]
  9. DEPO-MEDROL [Suspect]
     Active Substance: METHYLPREDNISOLONE ACETATE
     Indication: BURNING SENSATION
     Dosage: ?          QUANTITY:20 MG/ML;OTHER FREQUENCY:PER SHOT;OTHER ROUTE:IN THE GLUTS?
     Dates: start: 20100630, end: 20100723

REACTIONS (1)
  - Persistent genital arousal disorder [None]

NARRATIVE: CASE EVENT DATE: 20100630
